FAERS Safety Report 25701054 (Version 2)
Quarter: 2025Q3

REPORT INFORMATION
  Report Type: Spontaneous
  Country: BR (occurrence: BR)
  Receive Date: 20250819
  Receipt Date: 20250827
  Transmission Date: 20251021
  Serious: Yes (Hospitalization)
  Sender: BAYER HEALTHCARE PHARMACEUTICALS INC.
  Company Number: BR-BAYER-2025A097915

PATIENT
  Age: 42 Year
  Sex: Female

DRUGS (2)
  1. MIRENA [Suspect]
     Active Substance: LEVONORGESTREL
     Indication: Product used for unknown indication
     Dosage: 20?G/DAY
     Route: 015
     Dates: start: 20250331, end: 20250811
  2. PIROXICAM [Concomitant]
     Active Substance: PIROXICAM
     Dosage: 20 MG, BID

REACTIONS (18)
  - Irritability [Not Recovered/Not Resolved]
  - Emotional distress [None]
  - Acne [Not Recovered/Not Resolved]
  - Vaginal haemorrhage [Not Recovered/Not Resolved]
  - Weight increased [Not Recovered/Not Resolved]
  - Panic attack [Unknown]
  - Device issue [None]
  - Mood altered [Not Recovered/Not Resolved]
  - Anxiety [Not Recovered/Not Resolved]
  - Abdominal pain [Not Recovered/Not Resolved]
  - Mood swings [Not Recovered/Not Resolved]
  - Feeling abnormal [Not Recovered/Not Resolved]
  - Vaginal discharge [Not Recovered/Not Resolved]
  - Malaise [None]
  - Stress [None]
  - Nausea [None]
  - Abdominal pain lower [None]
  - Complication of device removal [None]

NARRATIVE: CASE EVENT DATE: 20250101
